FAERS Safety Report 15064899 (Version 1)
Quarter: 2018Q2

REPORT INFORMATION
  Report Type: Spontaneous
  Country: FR (occurrence: FR)
  Receive Date: 20180626
  Receipt Date: 20180626
  Transmission Date: 20180711
  Serious: Yes (Death, Hospitalization)
  Sender: FDA-Public Use
  Company Number: FR-TEVA-2018-FR-912927

PATIENT
  Age: 69 Year
  Sex: Female
  Weight: 55 kg

DRUGS (9)
  1. CORDARONE [Concomitant]
     Active Substance: AMIODARONE HYDROCHLORIDE
     Indication: ATRIAL FIBRILLATION
     Dosage: 150 MILLIGRAM DAILY;
     Route: 041
     Dates: start: 20170911
  2. CUBICIN [Suspect]
     Active Substance: DAPTOMYCIN
     Indication: BACTERAEMIA
     Dosage: 400 MILLIGRAM DAILY;
     Route: 042
     Dates: start: 20171102, end: 20171115
  3. TAZOCILLINE 4 G/500 MG, POUDRE POUR SOLUTION POUR PERFUSION [Concomitant]
     Active Substance: PIPERACILLIN SODIUM\TAZOBACTAM SODIUM
     Indication: SEPSIS
     Dosage: 12 GRAM DAILY;
     Route: 065
     Dates: start: 20171027, end: 20171110
  4. RAMIPRIL. [Suspect]
     Active Substance: RAMIPRIL
     Indication: RENAL FAILURE
     Dosage: 10 MILLIGRAM DAILY;
     Route: 048
     Dates: end: 20171117
  5. FUROSEMIDE. [Concomitant]
     Active Substance: FUROSEMIDE
     Indication: PRODUCT USED FOR UNKNOWN INDICATION
     Route: 048
     Dates: start: 20170911
  6. PANTOPRAZOLE [Suspect]
     Active Substance: PANTOPRAZOLE
     Indication: PRODUCT USED FOR UNKNOWN INDICATION
     Dosage: 40 MILLIGRAM DAILY;
     Route: 048
     Dates: start: 20170930, end: 20171117
  7. ALDACTONE 50 MG, COMPRIM? PELLICUL? S?CABLE [Concomitant]
     Indication: OEDEMA
     Dosage: 50 MILLIGRAM DAILY; SCORED
     Route: 048
     Dates: start: 20171019
  8. FLUCONAZOLE. [Concomitant]
     Active Substance: FLUCONAZOLE
     Indication: SEPSIS
     Dosage: 100 MILLIGRAM DAILY;
     Route: 048
     Dates: start: 20171027, end: 20171110
  9. CIPROFLOXACINE [Concomitant]
     Active Substance: CIPROFLOXACIN
     Indication: SEPSIS
     Dosage: 400 MILLIGRAM DAILY;
     Route: 042
     Dates: start: 20171027, end: 20171110

REACTIONS (1)
  - Agranulocytosis [Recovered/Resolved]

NARRATIVE: CASE EVENT DATE: 20171117
